FAERS Safety Report 15394485 (Version 1)
Quarter: 2018Q3

REPORT INFORMATION
  Report Type: Spontaneous
  Country: JP (occurrence: JP)
  Receive Date: 20180918
  Receipt Date: 20180918
  Transmission Date: 20181010
  Serious: Yes (Hospitalization)
  Sender: FDA-Public Use
  Company Number: JP-TEVA-2018-JP-954191

PATIENT
  Age: 64 Year
  Sex: Female

DRUGS (5)
  1. TACROLIMUS. [Interacting]
     Active Substance: TACROLIMUS
     Indication: IMMUNOSUPPRESSANT DRUG THERAPY
     Dosage: INITIAL UNKNOWN DOSE WAS TITRATED TO 4 MG/DAY
     Route: 048
  2. TACROLIMUS. [Interacting]
     Active Substance: TACROLIMUS
     Dosage: 4 MILLIGRAM DAILY;
     Route: 048
  3. PREDNISOLONE. [Suspect]
     Active Substance: PREDNISOLONE
     Dosage: 12.5 MILLIGRAM DAILY;
     Route: 065
  4. ITRACONAZOLE. [Interacting]
     Active Substance: ITRACONAZOLE
     Route: 048
  5. PREDNISOLONE. [Suspect]
     Active Substance: PREDNISOLONE
     Indication: IMMUNOSUPPRESSANT DRUG THERAPY
     Dosage: INITIAL UNKNOWN DOSE WAS TITRATED TO 12.5MG/DAY
     Route: 065

REACTIONS (5)
  - Respiratory failure [Recovering/Resolving]
  - Cardiac failure congestive [Unknown]
  - Drug interaction [Recovered/Resolved]
  - Sepsis [Recovering/Resolving]
  - Epstein-Barr virus associated lymphoma [Recovered/Resolved]
